FAERS Safety Report 7748172-5 (Version None)
Quarter: 2011Q3

REPORT INFORMATION
  Report Type: 
  Country: None (occurrence: None)
  Receive Date: 20110913
  Receipt Date: 20110907
  Transmission Date: 20111222
  Serious: Yes (Disabling)
  Sender: FDA-Public Use
  Company Number: JP-ABBOTT-11P-087-0852229-00

PATIENT
  Age: 54 Year
  Sex: Male

DRUGS (5)
  1. NORVIR [Suspect]
     Indication: HIV INFECTION
     Route: 048
     Dates: start: 20091026
  2. REYATAZ [Suspect]
     Indication: HIV INFECTION
     Route: 048
     Dates: start: 20091026
  3. BEZATOL [Concomitant]
     Indication: PROPHYLAXIS
     Dates: start: 20100401
  4. EPZICOM [Suspect]
     Indication: HIV INFECTION
     Route: 048
     Dates: start: 20091026
  5. BEZATOL [Concomitant]
     Indication: HYPERBILIRUBINAEMIA

REACTIONS (3)
  - EPILEPSY [None]
  - PARALYSIS [None]
  - TRANSIENT ISCHAEMIC ATTACK [None]
